FAERS Safety Report 13426099 (Version 1)
Quarter: 2017Q2

REPORT INFORMATION
  Report Type: Spontaneous
  Country: US (occurrence: US)
  Receive Date: 20170410
  Receipt Date: 20170410
  Transmission Date: 20170830
  Serious: Yes (Disabling)
  Sender: FDA-Public Use
  Company Number: None

PATIENT
  Age: 79 Year
  Sex: Female
  Weight: 57.6 kg

DRUGS (5)
  1. CALCIUM WITH D3 [Concomitant]
  2. PROLIA [Suspect]
     Active Substance: DENOSUMAB
     Indication: OSTEOPOROSIS
     Dosage: ?          OTHER FREQUENCY:EVERY 6 MONTHS;OTHER ROUTE:INJECTION IN ARM?
     Dates: start: 20160817, end: 20170217
  3. UBIQUINOL [Concomitant]
     Active Substance: UBIQUINOL
  4. BABY ASPIRIN [Concomitant]
     Active Substance: ASPIRIN
  5. RED YEAST RICE [Concomitant]
     Active Substance: DIETARY SUPPLEMENT

REACTIONS (9)
  - Muscle spasms [None]
  - Headache [None]
  - Night sweats [None]
  - Myalgia [None]
  - Rash [None]
  - Pain in extremity [None]
  - Back pain [None]
  - Constipation [None]
  - Cough [None]

NARRATIVE: CASE EVENT DATE: 20161018
